FAERS Safety Report 10401900 (Version 1)
Quarter: 2014Q3

REPORT INFORMATION
  Report Type: Spontaneous
  Country: US (occurrence: None)
  Receive Date: 20140820
  Receipt Date: 20140820
  Transmission Date: 20150326
  Serious: Yes (Hospitalization)
  Sender: FDA-Public Use
  Company Number: None

PATIENT
  Age: 44 Year
  Sex: Female
  Weight: 72.58 kg

DRUGS (1)
  1. REMICADE [Suspect]
     Active Substance: INFLIXIMAB
     Indication: RHEUMATOID ARTHRITIS
     Dosage: INFLIXIMAB (REMICADE) 200 MG  WEEK 2 AND WEEK 6  INTO A VEIN
     Route: 042
     Dates: start: 20140621, end: 20140801

REACTIONS (2)
  - Musculoskeletal pain [None]
  - Gait disturbance [None]

NARRATIVE: CASE EVENT DATE: 20140710
